FAERS Safety Report 8605976-4 (Version None)
Quarter: 2012Q3

REPORT INFORMATION
  Report Type: 
  Country: None (occurrence: None)
  Receive Date: 20120820
  Receipt Date: 20120810
  Transmission Date: 20120928
  Serious: Yes (Death)
  Sender: FDA-Public Use
  Company Number: NZ-PFIZER INC-2011194173

PATIENT
  Age: 18 Year
  Sex: Female

DRUGS (7)
  1. DEPO-PROVERA [Suspect]
     Dosage: 150 MG, EVERY 3 MONTHS
     Route: 030
     Dates: start: 20090126, end: 20090126
  2. GARDASIL [Suspect]
     Dosage: SINGLE DOSE
     Dates: start: 20081118, end: 20081118
  3. GARDASIL [Suspect]
     Dosage: SINGLE DOSE
     Dates: start: 20090317, end: 20090317
  4. GARDASIL [Suspect]
     Indication: IMMUNISATION
     Dosage: SINGLE DOSE
     Dates: start: 20080918, end: 20080918
  5. DEPO-PROVERA [Suspect]
     Dosage: 150 MG, EVERY 3 MONTHS
     Route: 030
     Dates: start: 20090710, end: 20090710
  6. DEPO-PROVERA [Suspect]
     Dosage: 150 MG, EVERY 3 MONTHS
     Route: 030
     Dates: start: 20090417, end: 20090417
  7. DEPO-PROVERA [Suspect]
     Indication: CONTRACEPTION
     Dosage: 150 MG, EVERY 3 MONTHS
     Route: 030
     Dates: start: 20081103, end: 20081103

REACTIONS (22)
  - ABNORMAL BEHAVIOUR [None]
  - ACTIVITIES OF DAILY LIVING IMPAIRED [None]
  - HEADACHE [None]
  - SUDDEN DEATH [None]
  - DRY SKIN [None]
  - UPPER RESPIRATORY TRACT INFECTION [None]
  - RHINORRHOEA [None]
  - MUSCULAR WEAKNESS [None]
  - CHEST PAIN [None]
  - PARAESTHESIA [None]
  - AMNESIA [None]
  - ABDOMINAL PAIN [None]
  - FATIGUE [None]
  - HEART RATE INCREASED [None]
  - AGITATION [None]
  - NIGHT SWEATS [None]
  - SKIN PAPILLOMA [None]
  - DIZZINESS [None]
  - ACNE [None]
  - INCREASED APPETITE [None]
  - COORDINATION ABNORMAL [None]
  - THINKING ABNORMAL [None]
